FAERS Safety Report 21240249 (Version 2)
Quarter: 2023Q1

REPORT INFORMATION
  Report Type: Spontaneous
  Country: CA (occurrence: CA)
  Receive Date: 20220822
  Receipt Date: 20230309
  Transmission Date: 20230417
  Serious: Yes (Life-Threatening, Hospitalization)
  Sender: FDA-Public Use
  Company Number: CA-ASTRAZENECA-2022A285938

PATIENT
  Age: 64 Year
  Sex: Male
  Weight: 90 kg

DRUGS (8)
  1. METFORMIN HYDROCHLORIDE [Suspect]
     Active Substance: METFORMIN HYDROCHLORIDE
     Indication: Diabetes mellitus
     Route: 048
  2. RAMIPRIL [Suspect]
     Active Substance: RAMIPRIL
     Indication: Hypertension
     Route: 048
  3. DAPAGLIFLOZIN [Suspect]
     Active Substance: DAPAGLIFLOZIN
     Indication: Diabetes mellitus
     Route: 048
  4. ATENOLOL [Suspect]
     Active Substance: ATENOLOL
     Indication: Hypertension
     Route: 048
  5. ROSUVASTATIN [Concomitant]
     Active Substance: ROSUVASTATIN
     Indication: Hypercholesterolaemia
  6. APIDRA [Concomitant]
     Active Substance: INSULIN GLULISINE
     Indication: Diabetes mellitus
  7. DULAGLUTIDE [Concomitant]
     Active Substance: DULAGLUTIDE
     Indication: Diabetes mellitus
  8. LANTUS [Concomitant]
     Active Substance: INSULIN GLARGINE
     Indication: Diabetes mellitus
     Dosage: 100 IU/ML

REACTIONS (4)
  - Metabolic acidosis [Recovered/Resolved]
  - Pulmonary oedema [Recovered/Resolved]
  - Hyperglycaemia [Recovered/Resolved]
  - Hypotension [Recovered/Resolved]
